FAERS Safety Report 5557981-2 (Version None)
Quarter: 2007Q4

REPORT INFORMATION
  Report Type: 
  Country: None (occurrence: None)
  Receive Date: 20071214
  Receipt Date: 20071206
  Transmission Date: 20080405
  Serious: Yes (Other)
  Sender: FDA-Public Use
  Company Number: PHHY2007BR00799

PATIENT
  Age: 69 Year
  Sex: Female
  Weight: 60 kg

DRUGS (1)
  1. FORASEQ [Suspect]
     Indication: ASTHMA

REACTIONS (8)
  - ANXIETY [None]
  - APHONIA [None]
  - DYSPNOEA [None]
  - MEMORY IMPAIRMENT [None]
  - RALES [None]
  - SECRETION DISCHARGE [None]
  - TONGUE DISCOLOURATION [None]
  - TREMOR [None]
